FAERS Safety Report 12085313 (Version 1)
Quarter: 2016Q1

REPORT INFORMATION
  Report Type: Spontaneous
  Country: US (occurrence: US)
  Receive Date: 20160217
  Receipt Date: 20160217
  Transmission Date: 20160526
  Serious: No
  Sender: FDA-Public Use
  Company Number: US-SHIRE-US201601879

PATIENT
  Weight: 50 kg

DRUGS (1)
  1. CINRYZE [Suspect]
     Active Substance: HUMAN C1-ESTERASE INHIBITOR
     Indication: HEREDITARY ANGIOEDEMA
     Dosage: 1500 UNITS, OTHER (EVERY 6 HOURS AS NEEDED)
     Route: 042

REACTIONS (3)
  - No adverse event [Unknown]
  - Prescribed overdose [Unknown]
  - Product use issue [Unknown]
